FAERS Safety Report 12617867 (Version 1)
Quarter: 2016Q3

REPORT INFORMATION
  Report Type: Spontaneous
  Country: US (occurrence: US)
  Receive Date: 20160803
  Receipt Date: 20160803
  Transmission Date: 20161109
  Serious: Yes (Other)
  Sender: FDA-Public Use
  Company Number: US-PFIZER INC-2016367656

PATIENT

DRUGS (1)
  1. CHANTIX [Suspect]
     Active Substance: VARENICLINE TARTRATE
     Dosage: UNK

REACTIONS (6)
  - Hostility [Unknown]
  - Suicidal ideation [Unknown]
  - Depressed mood [Unknown]
  - Abnormal behaviour [Unknown]
  - Agitation [Unknown]
  - Suicidal behaviour [Unknown]
